FAERS Safety Report 21633700 (Version 1)
Quarter: 2022Q4

REPORT INFORMATION
  Report Type: Spontaneous
  Country: US (occurrence: US)
  Receive Date: 20221123
  Receipt Date: 20221123
  Transmission Date: 20230113
  Serious: No
  Sender: FDA-Public Use
  Company Number: US-FreseniusKabi-FK202216082

PATIENT

DRUGS (1)
  1. ROCURONIUM BROMIDE [Suspect]
     Active Substance: ROCURONIUM BROMIDE
     Indication: Neuromuscular blockade
     Dosage: ROCURONIUM 50 MG/5 ML VIAL;  FOLLOWING MAINTENANCE DOSING .1, .15, AND .2 MG/KG IV GIVEN AT 25 PERCE
     Route: 042

REACTIONS (1)
  - Drug ineffective [Unknown]
